FAERS Safety Report 9293992 (Version 1)
Quarter: 2013Q1

REPORT INFORMATION
  Report Type: Spontaneous
  Country: US (occurrence: None)
  Receive Date: 20121221
  Receipt Date: 20121221
  Transmission Date: 20140127
  Serious: Yes (Other)
  Sender: FDA-Public Use
  Company Number: PHEH2011US010324

PATIENT
  Age: 7 Year
  Sex: Male

DRUGS (3)
  1. RITALIN [Suspect]
     Dosage: UNK, UKN, 1XDAY
  2. ADDERALL [Suspect]
     Dosage: UNK, UKN, 1XDAY
  3. CONCERTA [Suspect]

REACTIONS (4)
  - Attention deficit/hyperactivity disorder [None]
  - Aggression [None]
  - Weight increased [None]
  - Drug ineffective [None]
